FAERS Safety Report 8372590-8 (Version None)
Quarter: 2012Q2

REPORT INFORMATION
  Report Type: 
  Country: None (occurrence: None)
  Receive Date: 20120521
  Receipt Date: 20120516
  Transmission Date: 20120825
  Serious: Yes (Other)
  Sender: FDA-Public Use
  Company Number: PHEH2012US007979

PATIENT
  Sex: Male

DRUGS (6)
  1. TEGRETOL [Suspect]
     Dosage: 200 MG, UNK
     Dates: end: 20110101
  2. METOPROLOL [Concomitant]
     Dosage: UNK UKN, UNK
  3. CARBAMAZEPINE [Suspect]
  4. ZONISAMIDE [Concomitant]
     Dosage: UNK UKN, UNK
  5. VIMPAT [Concomitant]
     Dosage: UNK UKN, UNK
  6. TEGRETOL-XR [Suspect]

REACTIONS (1)
  - CONVULSION [None]
